FAERS Safety Report 16680467 (Version 1)
Quarter: 2019Q3

REPORT INFORMATION
  Report Type: Spontaneous
  Country: JP (occurrence: JP)
  Receive Date: 20190807
  Receipt Date: 20190807
  Transmission Date: 20191004
  Serious: Yes (Death, Life-Threatening, Hospitalization, Disabling, Other)
  Sender: FDA-Public Use
  Company Number: JP-009507513-1906JPN000232J

PATIENT
  Age: 73 Year
  Sex: Male
  Weight: 40 kg

DRUGS (13)
  1. KEYTRUDA [Suspect]
     Active Substance: PEMBROLIZUMAB
     Indication: NON-SMALL CELL LUNG CANCER
     Dosage: 200 MILLIGRAM, Q3W
     Route: 041
     Dates: start: 20190226, end: 20190508
  2. LOXOPROFEN [Concomitant]
     Active Substance: LOXOPROFEN
     Indication: PAIN
     Dosage: 60 MILLIGRAM, TID
     Route: 048
     Dates: start: 20190124, end: 20190517
  3. CARBOPLATIN. [Suspect]
     Active Substance: CARBOPLATIN
     Dosage: UNK
     Route: 065
  4. PROMAC [Concomitant]
     Active Substance: NITROFURANTOIN
     Indication: DECREASED APPETITE
     Dosage: 75 MILLIGRAM, BID
     Route: 048
     Dates: start: 20190410, end: 20190522
  5. HIRUDOID [Concomitant]
     Active Substance: GLYCOSAMINOGLYCANS
     Indication: DRUG ERUPTION
     Dosage: SEVERAL TIMES A DAY
     Route: 051
     Dates: start: 20190508
  6. MAGMITT [Concomitant]
     Active Substance: MAGNESIUM OXIDE
     Indication: CONSTIPATION
     Dosage: 330 MILLIGRAM, TID
     Route: 048
     Dates: start: 20190213, end: 20190522
  7. OXYCODONE [Concomitant]
     Active Substance: OXYCODONE
     Indication: PAIN
     Dosage: 20 MILLIGRAM, BID
     Route: 048
     Dates: start: 20190207, end: 20190522
  8. LYRICA [Concomitant]
     Active Substance: PREGABALIN
     Indication: PAIN
     Dosage: 75 MILLIGRAM, BID
     Route: 048
     Dates: start: 20190207, end: 20190522
  9. OXINORM [Concomitant]
     Indication: PAIN
     Dosage: 5 MILLIGRAM, UNK
     Route: 048
     Dates: start: 20190129, end: 20190522
  10. NEXIUM [Concomitant]
     Active Substance: ESOMEPRAZOLE MAGNESIUM
     Dosage: 20 MILLIGRAM, QD
     Route: 048
     Dates: start: 20190124, end: 20190522
  11. BILANOA [Concomitant]
     Active Substance: BILASTINE
     Indication: DRUG ERUPTION
     Dosage: 20 MILLIGRAM, QD
     Route: 048
     Dates: start: 20190508, end: 20190522
  12. ABRAXANE [Suspect]
     Active Substance: PACLITAXEL
     Dosage: UNK
     Route: 065
  13. SENNOSIDE [Concomitant]
     Active Substance: SENNOSIDES
     Indication: CONSTIPATION
     Dosage: 12 MILLIGRAM, QD
     Route: 048
     Dates: start: 20190213, end: 20190522

REACTIONS (6)
  - Malignant neoplasm progression [Fatal]
  - Erythema multiforme [Recovering/Resolving]
  - Cardiac failure congestive [Unknown]
  - Pneumonia aspiration [Unknown]
  - Renal disorder [Recovered/Resolved with Sequelae]
  - Stevens-Johnson syndrome [Recovering/Resolving]

NARRATIVE: CASE EVENT DATE: 20190512
